FAERS Safety Report 10442708 (Version 1)
Quarter: 2014Q3

REPORT INFORMATION
  Report Type: Spontaneous
  Country: NL (occurrence: None)
  Receive Date: 20140908
  Receipt Date: 20140908
  Transmission Date: 20150326
  Serious: Yes (Hospitalization, Other)
  Sender: FDA-Public Use
  Company Number: 2014AP004439

PATIENT
  Age: 42 Year
  Sex: Female

DRUGS (5)
  1. SUXAMETHONIUM CHLORIDE [Suspect]
     Active Substance: SUCCINYLCHOLINE CHLORIDE
     Indication: NEUROLEPTIC MALIGNANT SYNDROME
  2. FLURAZEPAM [Suspect]
     Active Substance: FLURAZEPAM\FLURAZEPAM HYDROCHLORIDE
     Indication: SUICIDE ATTEMPT
  3. DULOXETINE [Suspect]
     Active Substance: DULOXETINE
     Indication: SUICIDE ATTEMPT
  4. QUETIAPINE [Suspect]
     Active Substance: QUETIAPINE
     Indication: SUICIDE ATTEMPT
  5. INSULIN (INSULIN) [Suspect]
     Active Substance: INSULIN NOS
     Indication: SUICIDE ATTEMPT

REACTIONS (6)
  - Depressed level of consciousness [None]
  - Toxicity to various agents [None]
  - Neuroleptic malignant syndrome [None]
  - Ventricular fibrillation [None]
  - Suicide attempt [None]
  - Hyperkalaemia [None]
